FAERS Safety Report 12768764 (Version 1)
Quarter: 2016Q3

REPORT INFORMATION
  Report Type: Spontaneous
  Country: CN (occurrence: CN)
  Receive Date: 20160921
  Receipt Date: 20160921
  Transmission Date: 20161109
  Serious: Yes (Hospitalization)
  Sender: FDA-Public Use
  Company Number: CN-PFIZER INC-2016439145

PATIENT
  Age: 79 Year
  Sex: Female
  Weight: 72 kg

DRUGS (1)
  1. NORVASC [Suspect]
     Active Substance: AMLODIPINE BESYLATE
     Indication: HYPERTENSION
     Dosage: 1.25 MG, 1X/DAY
     Route: 048
     Dates: start: 20160615, end: 20160624

REACTIONS (5)
  - Intentional product use issue [Unknown]
  - Headache [Recovering/Resolving]
  - Oedema peripheral [Recovering/Resolving]
  - Blood pressure inadequately controlled [Recovering/Resolving]
  - Dizziness [Recovering/Resolving]

NARRATIVE: CASE EVENT DATE: 20160624
